FAERS Safety Report 16263593 (Version 2)
Quarter: 2019Q2

REPORT INFORMATION
  Report Type: Spontaneous
  Country: AT (occurrence: AT)
  Receive Date: 20190502
  Receipt Date: 20190510
  Transmission Date: 20190711
  Serious: Yes (Hospitalization)
  Sender: FDA-Public Use
  Company Number: AT-B.I. PHARMACEUTICALS,INC./RIDGEFIELD-2019-BI-019302

PATIENT
  Age: 55 Year
  Sex: Male

DRUGS (1)
  1. NON-BI DRUG [Suspect]
     Active Substance: UNSPECIFIED INGREDIENT
     Indication: CHRONIC OBSTRUCTIVE PULMONARY DISEASE
     Route: 065

REACTIONS (5)
  - Idiopathic pulmonary fibrosis [Unknown]
  - Forced vital capacity decreased [Unknown]
  - Dyspnoea [Unknown]
  - Adenocarcinoma [Unknown]
  - Infectious pleural effusion [Unknown]

NARRATIVE: CASE EVENT DATE: 201703
